FAERS Safety Report 8319974 (Version 4)
Quarter: 2013Q3

REPORT INFORMATION
  Report Type: Report from Study
  Country: CA (occurrence: CA)
  Receive Date: 20120103
  Receipt Date: 20130903
  Transmission Date: 20140515
  Serious: Yes (Hospitalization, Other)
  Sender: FDA-Public Use
  Company Number: CA-ROCHE-796490

PATIENT
  Age: 69 Year
  Sex: Female
  Weight: 89.8 kg

DRUGS (19)
  1. RITUXAN [Suspect]
     Indication: RHEUMATOID ARTHRITIS
     Dosage: DAY 1 AND 15, LAST DOSE PRIOR TO SAE 10/JUL/2012.
     Route: 042
  2. INSULIN [Concomitant]
  3. LIPITOR [Concomitant]
  4. ADALAT [Concomitant]
  5. LYRICA [Concomitant]
  6. CELEBREX [Concomitant]
  7. EFFEXOR [Concomitant]
  8. RANITIDINE [Concomitant]
  9. OMEPRAZOLE [Concomitant]
  10. SYNTHROID [Concomitant]
  11. ATIVAN [Concomitant]
  12. DEMEROL [Concomitant]
  13. ZOPICLONE [Concomitant]
  14. DIPHENHYDRAMINE HYDROCHLORIDE [Concomitant]
     Indication: PREMEDICATION
     Route: 048
     Dates: start: 20110208, end: 20110208
  15. ACETAMINOFEN [Concomitant]
     Indication: PREMEDICATION
     Route: 048
     Dates: start: 20110208, end: 20110208
  16. ACETAMINOFEN [Concomitant]
     Route: 048
  17. LOSEC (CANADA) [Concomitant]
  18. PREDNISONE [Concomitant]
  19. METHYLPREDNISOLONE [Concomitant]
     Route: 042
     Dates: start: 20071207

REACTIONS (5)
  - Bowen^s disease [Recovered/Resolved]
  - Basal cell carcinoma [Unknown]
  - Nasopharyngitis [Not Recovered/Not Resolved]
  - Pyrexia [Not Recovered/Not Resolved]
  - Gastroenteritis [Recovered/Resolved]
